FAERS Safety Report 25045445 (Version 1)
Quarter: 2025Q1

REPORT INFORMATION
  Report Type: Spontaneous
  Country: US (occurrence: None)
  Receive Date: 20250305
  Receipt Date: 20250305
  Transmission Date: 20250409
  Serious: Yes (Other)
  Sender: FDA-CTU
  Company Number: None

PATIENT
  Age: 70 Year
  Sex: Male

DRUGS (4)
  1. LENALIDOMIDE [Suspect]
     Active Substance: LENALIDOMIDE
     Indication: Plasma cell myeloma
     Dosage: 25MG DAILY ORAL
     Route: 048
     Dates: start: 20250128, end: 20250217
  2. DARATUMUMAB [Suspect]
     Active Substance: DARATUMUMAB
  3. DARATUMUMAB [Suspect]
     Active Substance: DARATUMUMAB
  4. BORTEZOMIB [Suspect]
     Active Substance: BORTEZOMIB

REACTIONS (5)
  - Leukocytosis [None]
  - Fatigue [None]
  - Exercise tolerance decreased [None]
  - Anaemia [None]
  - Therapy change [None]

NARRATIVE: CASE EVENT DATE: 20250219
